FAERS Safety Report 4444426-9 (Version None)
Quarter: 2004Q3

REPORT INFORMATION
  Report Type: 
  Country: None (occurrence: None)
  Receive Date: 20040902
  Receipt Date: 20040816
  Transmission Date: 20050211
  Serious: Yes (Other)
  Sender: FDA-Public Use
  Company Number: A03200402741

PATIENT
  Sex: Male

DRUGS (1)
  1. ELIGARD [Suspect]
     Dosage: 7.5 MG ONCE - SUBCUTANEOUS
     Route: 058

REACTIONS (2)
  - INJECTION SITE NECROSIS [None]
  - MEDICATION ERROR [None]
